FAERS Safety Report 7808766-5 (Version None)
Quarter: 2011Q4

REPORT INFORMATION
  Report Type: 
  Country: None (occurrence: None)
  Receive Date: 20111012
  Receipt Date: 20110928
  Transmission Date: 20120403
  Serious: Yes (Other)
  Sender: FDA-Public Use
  Company Number: PHHY2011BR86677

PATIENT
  Age: 68 Year
  Sex: Female
  Weight: 98 kg

DRUGS (1)
  1. RASILEZ [Suspect]
     Dosage: 300 MG, UNK

REACTIONS (2)
  - BLOOD GLUCOSE DECREASED [None]
  - GLYCOSYLATED HAEMOGLOBIN INCREASED [None]
